FAERS Safety Report 6429368-1 (Version None)
Quarter: 2009Q4

REPORT INFORMATION
  Report Type: 
  Country: None (occurrence: None)
  Receive Date: 20091105
  Receipt Date: 20090416
  Transmission Date: 20100525
  Serious: No
  Sender: FDA-Public Use
  Company Number: US-ABBOTT-09P-163-0569033-00

PATIENT
  Sex: Male
  Weight: 59.928 kg

DRUGS (4)
  1. KALETRA [Suspect]
     Indication: HIV TEST POSITIVE
     Dosage: TAKES 5 PILLS DAILY.  PATIENT TAKES 5 PILLS DAILY OFF AND ON
     Dates: start: 20050101
  2. KALETRA [Suspect]
     Dosage: TAKES 5 PILLS DAILY FOR THE PAST 4 YEARS
  3. PERCOCET [Concomitant]
     Indication: PAIN
     Dosage: AS REQUIRED
  4. OXYCONTIN [Concomitant]
     Indication: PAIN
     Dosage: AS REQUIRED

REACTIONS (2)
  - BLOOD COUNT ABNORMAL [None]
  - DECREASED APPETITE [None]
